FAERS Safety Report 5011371-X (Version None)
Quarter: 2006Q2

REPORT INFORMATION
  Report Type: 
  Country: None (occurrence: None)
  Receive Date: 20060404
  Receipt Date: 20060111
  Transmission Date: 20061013
  Serious: No
  Sender: FDA-Public Use
  Company Number: US200601001649

PATIENT
  Sex: Female

DRUGS (1)
  1. CYMBALTA [Suspect]
     Indication: NEUROPATHY
     Dosage: 60 MG, DAILY (1/D)
     Dates: start: 20050101

REACTIONS (18)
  - BURNING SENSATION [None]
  - CHOKING [None]
  - DIFFICULTY IN WALKING [None]
  - DIPLOPIA [None]
  - DIZZINESS [None]
  - DYSPHAGIA [None]
  - DYSPNOEA EXERTIONAL [None]
  - EAR PAIN [None]
  - EYE DISORDER [None]
  - EYE PAIN [None]
  - FACIAL PAIN [None]
  - HEADACHE [None]
  - HEART RATE IRREGULAR [None]
  - HYPOAESTHESIA [None]
  - MUSCLE TWITCHING [None]
  - PAIN [None]
  - PARAESTHESIA [None]
  - TREMOR [None]
